FAERS Safety Report 18476414 (Version 5)
Quarter: 2021Q1

REPORT INFORMATION
  Report Type: Spontaneous
  Country: PT (occurrence: PT)
  Receive Date: 20201106
  Receipt Date: 20210201
  Transmission Date: 20210419
  Serious: Yes (Other)
  Sender: FDA-Public Use
  Company Number: PT-GILEAD-2020-0502178

PATIENT
  Age: 78 Year
  Sex: Male
  Weight: 75 kg

DRUGS (14)
  1. ERYTHROMYCIN. [Concomitant]
     Active Substance: ERYTHROMYCIN
  2. HYDROXYZINE [Concomitant]
     Active Substance: HYDROXYZINE HYDROCHLORIDE
     Route: 048
  3. METOCLOPRAMIDE. [Concomitant]
     Active Substance: METOCLOPRAMIDE
  4. SUCRALFATE. [Concomitant]
     Active Substance: SUCRALFATE
     Route: 048
  5. VEKLURY [Suspect]
     Active Substance: REMDESIVIR
     Indication: COVID-19
     Dosage: 200 MG ONCE (DOSE NO D1)
     Route: 042
     Dates: start: 20200912, end: 20200916
  6. ALFENTANIL. [Concomitant]
     Active Substance: ALFENTANIL
     Route: 042
  7. ERYTHROMYCIN. [Concomitant]
     Active Substance: ERYTHROMYCIN
  8. VEKLURY [Suspect]
     Active Substance: REMDESIVIR
     Indication: COVID-19 PNEUMONIA
     Dosage: 100 MG (DOSE NO D2?D10)
     Route: 042
     Dates: start: 20200912, end: 20200916
  9. DOMPERIDONE [Concomitant]
     Active Substance: DOMPERIDONE
     Route: 048
  10. MIDAZOLAM. [Concomitant]
     Active Substance: MIDAZOLAM
     Route: 042
  11. BISACODYL. [Concomitant]
     Active Substance: BISACODYL
     Route: 048
  12. ENOXAPARIN SODIUM. [Concomitant]
     Active Substance: ENOXAPARIN SODIUM
     Route: 058
  13. PIPERACILLIN AND TAZOBACTAM [Concomitant]
     Active Substance: PIPERACILLIN SODIUM\TAZOBACTAM SODIUM
     Route: 042
  14. ERYTHROMYCIN. [Concomitant]
     Active Substance: ERYTHROMYCIN

REACTIONS (2)
  - Renal impairment [Recovering/Resolving]
  - Anuria [Recovering/Resolving]

NARRATIVE: CASE EVENT DATE: 20200917
